FAERS Safety Report 19007664 (Version 3)
Quarter: 2022Q2

REPORT INFORMATION
  Report Type: Report from Study
  Country: CZ (occurrence: CZ)
  Receive Date: 20210315
  Receipt Date: 20220520
  Transmission Date: 20220721
  Serious: Yes (Death, Hospitalization)
  Sender: FDA-Public Use
  Company Number: CZ-SA-2019SA062044

PATIENT
  Age: 76 Year
  Sex: Male
  Weight: 84 kg

DRUGS (22)
  1. ISATUXIMAB [Suspect]
     Active Substance: ISATUXIMAB
     Indication: Plasma cell myeloma
     Dosage: 10 MG/KG, QOW
     Route: 042
     Dates: start: 20190218, end: 20190218
  2. ISATUXIMAB [Suspect]
     Active Substance: ISATUXIMAB
     Dosage: 10 MG/KG, QW
     Route: 042
     Dates: start: 20181112, end: 20181112
  3. BORTEZOMIB [Suspect]
     Active Substance: BORTEZOMIB
     Indication: Plasma cell myeloma
     Dosage: 1.3 MG/M2, ON DAYS 1, 4, 8, 11, 22, 25, 29, AND 32
     Route: 058
     Dates: start: 20190225, end: 20190225
  4. BORTEZOMIB [Suspect]
     Active Substance: BORTEZOMIB
     Dosage: 1.3 MG/M2, ON DAYS 1, 4, 8, 11, 22, 25, 29, AND 32
     Route: 058
     Dates: start: 20181112, end: 20181112
  5. LENALIDOMIDE [Suspect]
     Active Substance: LENALIDOMIDE
     Indication: Plasma cell myeloma
     Dosage: 25 MG, QD
     Route: 048
     Dates: start: 20190226, end: 20190303
  6. LENALIDOMIDE [Suspect]
     Active Substance: LENALIDOMIDE
     Dosage: 25 MG, QD
     Route: 048
     Dates: start: 20181112, end: 20181118
  7. DEXAMETHASONE [Suspect]
     Active Substance: DEXAMETHASONE
     Indication: Plasma cell myeloma
     Dosage: 20 MG, DAYS 1, 4, 8, 11, 15, 22, 25, 29 AND 32
     Route: 048
     Dates: start: 20190225, end: 20190225
  8. DEXAMETHASONE [Suspect]
     Active Substance: DEXAMETHASONE
     Dosage: 20 MG, QW
     Route: 042
     Dates: start: 20181112, end: 20181112
  9. PARALEN [PARACETAMOL] [Concomitant]
     Indication: Prophylaxis
     Dosage: 1 G, 1X
     Route: 048
     Dates: start: 20190218, end: 20190218
  10. CETIRIZINE HYDROCHLORIDE [Concomitant]
     Active Substance: CETIRIZINE HYDROCHLORIDE
     Indication: Prophylaxis
     Dosage: 10 MG, 1X
     Route: 048
     Dates: start: 20190218, end: 20190218
  11. CONTROLOC [Concomitant]
     Active Substance: PANTOPRAZOLE SODIUM
     Indication: Prophylaxis
     Dosage: 40 MG, 1X
     Route: 048
     Dates: start: 20190218, end: 20190218
  12. ASPIRIN [Concomitant]
     Active Substance: ASPIRIN
     Indication: Prophylaxis
     Dosage: UNK
     Route: 048
     Dates: start: 20181112
  13. ZOVIRAX [Concomitant]
     Active Substance: ACYCLOVIR
     Indication: Prophylaxis
     Dosage: UNK
     Route: 048
     Dates: start: 20181112
  14. ISOPTIN [Concomitant]
     Active Substance: VERAPAMIL HYDROCHLORIDE
     Dosage: UNK
     Route: 048
     Dates: start: 2018
  15. ZALDIAR [Concomitant]
     Active Substance: ACETAMINOPHEN\TRAMADOL HYDROCHLORIDE
     Dosage: UNK UNK, UNK
     Route: 048
     Dates: start: 20181112
  16. PERINDOPRIL [Concomitant]
     Active Substance: PERINDOPRIL
     Dosage: UNK UNK, UNK
     Route: 048
     Dates: start: 2018
  17. NEURONTIN [Concomitant]
     Active Substance: GABAPENTIN
     Dosage: UNK UNK, UNK
     Route: 048
     Dates: start: 2018
  18. FUROSEMIDE [Concomitant]
     Active Substance: FUROSEMIDE
     Dosage: UNK UNK, UNK
     Route: 048
     Dates: start: 20190128
  19. POTASSIUM CHLORIDE [Concomitant]
     Active Substance: POTASSIUM CHLORIDE
     Dosage: UNK UNK, UNK
     Route: 048
     Dates: start: 20190128
  20. AUGMENTIN [Concomitant]
     Active Substance: AMOXICILLIN\CLAVULANATE POTASSIUM
     Dosage: UNK UNK, UNK
     Route: 048
     Dates: start: 20190227, end: 20190303
  21. DIFLUCAN [Concomitant]
     Active Substance: FLUCONAZOLE
     Dosage: UNK UNK, UNK
     Route: 048
     Dates: start: 20190227, end: 20190304
  22. TAMIFLU [Concomitant]
     Active Substance: OSELTAMIVIR PHOSPHATE
     Dosage: UNK UNK, UNK
     Route: 048
     Dates: start: 20190227, end: 20190303

REACTIONS (2)
  - Pneumonia pseudomonal [Fatal]
  - Acute kidney injury [Not Recovered/Not Resolved]

NARRATIVE: CASE EVENT DATE: 20190303
